FAERS Safety Report 14151445 (Version 1)
Quarter: 2017Q4

REPORT INFORMATION
  Report Type: Spontaneous
  Country: US (occurrence: US)
  Receive Date: 20171102
  Receipt Date: 20171102
  Transmission Date: 20180321
  Serious: No
  Sender: FDA-Public Use
  Company Number: US-PFIZER INC-2017465715

PATIENT
  Age: 7 Decade
  Sex: Male

DRUGS (1)
  1. MYLOTARG [Suspect]
     Active Substance: GEMTUZUMAB OZOGAMICIN
     Dosage: 6MG/METERS SQUARED FOR THE FIRST DOSE AND THEN 3MG/METERS SQUARED ON DAY

REACTIONS (1)
  - Chills [Recovered/Resolved]
